FAERS Safety Report 25157528 (Version 1)
Quarter: 2025Q2

REPORT INFORMATION
  Report Type: Spontaneous
  Country: US (occurrence: US)
  Receive Date: 20250403
  Receipt Date: 20250403
  Transmission Date: 20250717
  Serious: No
  Sender: BIOGEN
  Company Number: US-BIOGEN-2022BI01106915

PATIENT
  Age: 49 Year
  Sex: Male

DRUGS (1)
  1. SPINRAZA [Suspect]
     Active Substance: NUSINERSEN
     Indication: Spinal muscular atrophy
     Route: 050

REACTIONS (3)
  - Foot fracture [Recovered/Resolved]
  - Weight bearing difficulty [Recovered/Resolved]
  - Atrophy [Recovered/Resolved]

NARRATIVE: CASE EVENT DATE: 20211203
